FAERS Safety Report 6555494-2 (Version None)
Quarter: 2010Q1

REPORT INFORMATION
  Report Type: 
  Country: None (occurrence: None)
  Receive Date: 20100128
  Receipt Date: 20100119
  Transmission Date: 20100710
  Serious: Yes (Death)
  Sender: FDA-Public Use
  Company Number: FR-NOVOPROD-303421

PATIENT
  Age: 80 Year
  Sex: Male

DRUGS (11)
  1. NOVONORM [Suspect]
     Indication: TYPE 2 DIABETES MELLITUS
     Dosage: 1 MG, QD
     Route: 048
  2. ENANTONE                           /00726901/ [Concomitant]
     Dosage: 30 MG PER 3 MONTHS
     Route: 058
     Dates: start: 20090207
  3. COMTAN [Concomitant]
     Dosage: 1000 MG, QD
     Route: 048
  4. MODOPAR [Concomitant]
     Dosage: 625 MG, QD
     Route: 048
  5. COZAAR [Concomitant]
     Dosage: 50 MG, QD
     Route: 048
  6. METFORMIN HCL [Concomitant]
     Dosage: 2000 MG, QD
     Route: 048
  7. TAHOR [Concomitant]
     Dosage: 10 MG, QD
     Route: 048
  8. EQUANIL [Concomitant]
     Dosage: 500 MG, QD
     Route: 048
  9. ATHYMIL [Concomitant]
     Dosage: 30 MG, QD
     Route: 048
  10. LEXOMIL [Concomitant]
     Dosage: 3 MG, QD
     Route: 048
  11. FORLAX [Concomitant]
     Dosage: MACROGOL 4000, 20 MG
     Route: 048

REACTIONS (1)
  - DEATH [None]
